FAERS Safety Report 11068420 (Version 1)
Quarter: 2015Q2

REPORT INFORMATION
  Report Type: Spontaneous
  Country: US (occurrence: None)
  Receive Date: 20150424
  Receipt Date: 20150424
  Transmission Date: 20150821
  Serious: No
  Sender: FDA-Public Use
  Company Number: None

PATIENT
  Age: 43 Year
  Sex: Female
  Weight: 56.7 kg

DRUGS (3)
  1. RANITIDINE [Suspect]
     Active Substance: RANITIDINE\RANITIDINE HYDROCHLORIDE
     Indication: GASTRIC PH DECREASED
     Dosage: 1 PILL
     Route: 048
     Dates: start: 20150420
  2. BENADRYL [Concomitant]
     Active Substance: DIPHENHYDRAMINE HYDROCHLORIDE
  3. TOPAMAX [Concomitant]
     Active Substance: TOPIRAMATE

REACTIONS (4)
  - Abdominal pain [None]
  - Vomiting [None]
  - Diarrhoea [None]
  - Nausea [None]

NARRATIVE: CASE EVENT DATE: 20150420
